FAERS Safety Report 20591545 (Version 17)
Quarter: 2022Q4

REPORT INFORMATION
  Report Type: Report from Study
  Country: CA (occurrence: CA)
  Receive Date: 20220314
  Receipt Date: 20221221
  Transmission Date: 20230113
  Serious: Yes (Hospitalization, Other)
  Sender: FDA-Public Use
  Company Number: CA-OTSUKA-2021_042491

PATIENT
  Age: 69 Year
  Sex: Female

DRUGS (5)
  1. CEDAZURIDINE\DECITABINE [Suspect]
     Active Substance: CEDAZURIDINE\DECITABINE
     Indication: Myelodysplastic syndrome
     Dosage: 3 PILLS PER CYCLE
     Route: 065
  2. CEDAZURIDINE\DECITABINE [Suspect]
     Active Substance: CEDAZURIDINE\DECITABINE
     Dosage: 4 PILLS/CYCLE; (35 MG DECITABINE AND 100 MG CEDAZURIDINE)
     Route: 065
  3. CEDAZURIDINE\DECITABINE [Suspect]
     Active Substance: CEDAZURIDINE\DECITABINE
     Dosage: UNK, (35 MG DECITABINE AND 100 MG CEDAZURIDINE)
     Route: 065
     Dates: start: 20211202
  4. CEDAZURIDINE\DECITABINE [Suspect]
     Active Substance: CEDAZURIDINE\DECITABINE
     Dosage: UNK, QOD (1,3, AND 5 DAYS) OF EVERY 28-DAY CYCLE
     Route: 065
  5. ZOFRAN [Concomitant]
     Active Substance: ONDANSETRON HYDROCHLORIDE
     Indication: Product used for unknown indication
     Dosage: UNK
     Route: 065

REACTIONS (20)
  - Thrombosis [Recovered/Resolved]
  - Transfusion [Recovered/Resolved]
  - Post procedural haemorrhage [Unknown]
  - Blood product transfusion dependent [Unknown]
  - Cytopenia [Unknown]
  - Platelet count decreased [Unknown]
  - Alopecia [Not Recovered/Not Resolved]
  - Feeling abnormal [Not Recovered/Not Resolved]
  - Red blood cell count increased [Unknown]
  - Dental operation [Unknown]
  - Eastern Cooperative Oncology Group performance status worsened [Unknown]
  - Full blood count abnormal [Unknown]
  - General physical health deterioration [Unknown]
  - Constipation [Unknown]
  - Gingival bleeding [Recovering/Resolving]
  - Asthenia [Not Recovered/Not Resolved]
  - Fatigue [Not Recovered/Not Resolved]
  - Product use issue [Unknown]
  - Therapy interrupted [Unknown]
  - Drug ineffective [Unknown]

NARRATIVE: CASE EVENT DATE: 20220104
